FAERS Safety Report 18798494 (Version 2)
Quarter: 2021Q1

REPORT INFORMATION
  Report Type: Spontaneous
  Country: US (occurrence: US)
  Receive Date: 20210128
  Receipt Date: 20210211
  Transmission Date: 20210419
  Serious: Yes (Hospitalization, Other)
  Sender: FDA-Public Use
  Company Number: US-ASTELLAS-2021US002799

PATIENT
  Age: 39 Year
  Sex: Male

DRUGS (5)
  1. MEROPENEM. [Suspect]
     Active Substance: MEROPENEM
     Indication: KLEBSIELLA INFECTION
  2. NOXAFIL [Suspect]
     Active Substance: POSACONAZOLE
     Indication: MUCORMYCOSIS
  3. AMPHOTERICIN B, LIPOSOME [Suspect]
     Active Substance: AMPHOTERICIN B
     Indication: WOUND INFECTION FUNGAL
     Dosage: UNK, UNKNOWN FREQ.
     Route: 065
  4. MEROPENEM. [Suspect]
     Active Substance: MEROPENEM
     Indication: NECROTISING FASCIITIS FUNGAL
     Dosage: UNK, UNKNOWN FREQ.
     Route: 065
  5. NOXAFIL [Suspect]
     Active Substance: POSACONAZOLE
     Indication: NECROTISING FASCIITIS FUNGAL
     Dosage: UNK, UNKNOWN FREQ.
     Route: 048

REACTIONS (4)
  - Acute kidney injury [Recovering/Resolving]
  - Liver function test increased [Recovering/Resolving]
  - Pancytopenia [Recovering/Resolving]
  - Condition aggravated [Recovering/Resolving]
